FAERS Safety Report 9583091 (Version 1)
Quarter: 2013Q4

REPORT INFORMATION
  Report Type: Spontaneous
  Country: US (occurrence: US)
  Receive Date: 20131002
  Receipt Date: 20131002
  Transmission Date: 20140711
  Serious: No
  Sender: FDA-Public Use
  Company Number: US-AMGEN-USASP2013044925

PATIENT
  Age: 49 Year
  Sex: Male

DRUGS (3)
  1. ENBREL [Suspect]
     Indication: ANKYLOSING SPONDYLITIS
     Dosage: 50 MG, QWK
     Route: 065
     Dates: start: 20070501
  2. SIMPONI [Concomitant]
     Dosage: UNK
     Dates: start: 2009, end: 2011
  3. HUMIRA [Concomitant]
     Dosage: UNK
     Dates: start: 2011, end: 2013

REACTIONS (3)
  - Diarrhoea [Not Recovered/Not Resolved]
  - Therapeutic response decreased [Unknown]
  - Headache [Recovered/Resolved]
